FAERS Safety Report 8396605-6 (Version None)
Quarter: 2012Q1

REPORT INFORMATION
  Report Type: 
  Country: None (occurrence: None)
  Receive Date: 20120323
  Receipt Date: 20110725
  Transmission Date: 20120608
  Serious: Yes (Other)
  Sender: FDA-Public Use
  Company Number: 163-21880-11040092

PATIENT
  Age: 73 Year
  Sex: Female
  Weight: 116.5744 kg

DRUGS (26)
  1. EVISTA (RALOXIFENE HYDROCHLORIDE) (TABLETS) [Concomitant]
  2. PROCRIT [Concomitant]
  3. FACTIVE (GEMIFLOXACIN MESYLATE) (TABLETS) [Concomitant]
  4. DIOVAN HCT (CO-DIOVAN) (TABLETS) [Concomitant]
  5. TRIAMTERENE/ HCTZ ( DYAZIDE) (UNKNOWN) [Concomitant]
  6. PEPCID (FAMOTIDINE) (TABLETS) [Concomitant]
  7. METHYLPREDNISOLONE (METHYLPREDNISOLONE) (TABLETS) [Concomitant]
  8. LIDODERM (LIDOCAINE) (POULTICE OR PATCH) [Concomitant]
  9. DEXAMETHASONE [Concomitant]
  10. FENOFIBRATE [Concomitant]
  11. VITAMIN C (ASCORBIC ACID) (TABLETS) [Concomitant]
  12. TRIAMCINOLONE ACETONIDE (TRIAMCINOLONE ACETONIDE) (UNKNOWN) [Concomitant]
  13. CALCIUM + D(OS-CAL) (TABLETS) [Concomitant]
  14. REVLIMID [Suspect]
     Indication: MULTIPLE MYELOMA
     Dosage: 25 MG, QD DAYS 1-21, PO
     Route: 048
     Dates: start: 20110101
  15. OMEPRAZOLE [Concomitant]
  16. AMLODIPINE BESYLATE (AMLODIPINE BESILATE) (TABLETS) [Concomitant]
  17. VITAMIN B12-FOLIC ACID (FOLGAMMA ^ANKERMANN^) (TABLETS) [Concomitant]
  18. SIMVASTATIN [Concomitant]
  19. TEKTURNA (ALISKIREN) (TABLETS) [Concomitant]
  20. COMPAZINE (PROCHLORPERAZINE EDISYLATE) (TABLETS) [Concomitant]
  21. CARVEDILOL (CARVEDILOL) (TABLETS) [Concomitant]
  22. LEVAQUIN [Concomitant]
  23. ALLOPURINOL [Concomitant]
  24. ECOTRIN (ACETYLSALICYLIC ACID) (TABLETS) [Concomitant]
  25. JANUMET [Concomitant]
  26. ZOMETA [Concomitant]

REACTIONS (6)
  - VISUAL IMPAIRMENT [None]
  - BLOOD CREATININE INCREASED [None]
  - HEADACHE [None]
  - BLOOD PRESSURE DECREASED [None]
  - PRURITUS [None]
  - MALAISE [None]
